FAERS Safety Report 11361535 (Version 1)
Quarter: 2015Q3

REPORT INFORMATION
  Report Type: Spontaneous
  Country: US (occurrence: US)
  Receive Date: 20150810
  Receipt Date: 20150810
  Transmission Date: 20151125
  Serious: No
  Sender: FDA-Public Use
  Company Number: US-BIOGENIDEC-2015BI107634

PATIENT
  Age: 41 Year
  Sex: Female

DRUGS (10)
  1. TECFIDERA [Suspect]
     Active Substance: DIMETHYL FUMARATE
     Indication: RELAPSING-REMITTING MULTIPLE SCLEROSIS
  2. MODAFINIL. [Concomitant]
     Active Substance: MODAFINIL
  3. OXYBUTYNIN [Concomitant]
     Active Substance: OXYBUTYNIN
  4. GABAPENTIN. [Concomitant]
     Active Substance: GABAPENTIN
  5. ADVIL [Concomitant]
     Active Substance: IBUPROFEN
  6. PROTONIX [Concomitant]
     Active Substance: PANTOPRAZOLE SODIUM
  7. TUMS [Concomitant]
     Active Substance: CALCIUM CARBONATE
  8. BACLOFEN. [Concomitant]
     Active Substance: BACLOFEN
  9. DOXYCYCLINE. [Concomitant]
     Active Substance: DOXYCYCLINE
  10. ZOFRAN [Concomitant]
     Active Substance: ONDANSETRON HYDROCHLORIDE

REACTIONS (5)
  - Haematemesis [Unknown]
  - Nausea [Unknown]
  - Gastrointestinal ulcer [Unknown]
  - Weight decreased [Unknown]
  - Drug ineffective [Unknown]
